FAERS Safety Report 9878742 (Version 1)
Quarter: 2014Q1

REPORT INFORMATION
  Report Type: Spontaneous
  Country: US (occurrence: US)
  Receive Date: 20140206
  Receipt Date: 20140206
  Transmission Date: 20141002
  Serious: No
  Sender: FDA-Public Use
  Company Number: US-JNJFOC-20140115103

PATIENT
  Age: 52 Year
  Sex: Female
  Weight: 79.38 kg

DRUGS (9)
  1. DURAGESIC [Suspect]
     Indication: BACK PAIN
     Route: 062
     Dates: start: 2008
  2. BYSTOLIC [Concomitant]
     Indication: HYPERTENSION
     Route: 048
     Dates: start: 2013
  3. COMBIVENT [Concomitant]
     Indication: ASTHMA
     Route: 065
     Dates: start: 2004
  4. AMOXICILLIN [Concomitant]
     Indication: DENTAL CARE
     Route: 065
  5. KLONOPIN [Concomitant]
     Indication: ANXIETY
     Route: 048
  6. DOXEPIN [Concomitant]
     Indication: ANTIDEPRESSANT THERAPY
     Route: 048
     Dates: start: 1993
  7. DOXEPIN [Concomitant]
     Indication: MUSCLE RELAXANT THERAPY
     Route: 048
     Dates: start: 1993
  8. LAMICTAL [Concomitant]
     Indication: PRODUCT USED FOR UNKNOWN INDICATION
     Route: 048
  9. ZANAFLEX [Concomitant]
     Indication: MUSCLE RELAXANT THERAPY
     Route: 048
     Dates: start: 1993

REACTIONS (4)
  - Drug dose omission [Unknown]
  - Dry skin [Not Recovered/Not Resolved]
  - Product quality issue [Unknown]
  - Wrong technique in drug usage process [Unknown]
